FAERS Safety Report 25990189 (Version 1)
Quarter: 2025Q4

REPORT INFORMATION
  Report Type: Spontaneous
  Country: US (occurrence: None)
  Receive Date: 20251102
  Receipt Date: 20251102
  Transmission Date: 20260118
  Serious: No
  Sender: FDA-CTU
  Company Number: None

PATIENT
  Age: 36 Year
  Sex: Female
  Weight: 105.75 kg

DRUGS (13)
  1. UBRELVY [Suspect]
     Active Substance: UBROGEPANT
     Indication: Migraine
     Dosage: OTHER QUANTITY : 1 TABLET(S);?FREQUENCY : AS NEEDED;?
     Route: 048
     Dates: start: 20250525, end: 20251031
  2. MIRENA [Concomitant]
     Active Substance: LEVONORGESTREL
  3. QULIPTA [Concomitant]
     Active Substance: ATOGEPANT
  4. ZONISAMIDE [Concomitant]
     Active Substance: ZONISAMIDE
  5. TRINTELLIX [Concomitant]
     Active Substance: VORTIOXETINE HYDROBROMIDE
  6. KETOROLAC [Concomitant]
     Active Substance: KETOROLAC TROMETHAMINE
  7. ALPRAZOLAM [Concomitant]
     Active Substance: ALPRAZOLAM
  8. DEXTROAMPHETAMINE [Concomitant]
     Active Substance: DEXTROAMPHETAMINE
  9. B2 [Concomitant]
  10. B12 [Concomitant]
  11. IRON [Concomitant]
     Active Substance: IRON
  12. D [Concomitant]
  13. MAGNESIUM [Concomitant]
     Active Substance: MAGNESIUM

REACTIONS (2)
  - Pelvic pain [None]
  - Uterine leiomyoma [None]

NARRATIVE: CASE EVENT DATE: 20251031
